FAERS Safety Report 14839001 (Version 1)
Quarter: 2018Q2

REPORT INFORMATION
  Report Type: Spontaneous
  Country: CZ (occurrence: CZ)
  Receive Date: 20180502
  Receipt Date: 20180502
  Transmission Date: 20180711
  Serious: Yes (Other)
  Sender: FDA-Public Use
  Company Number: CZ-MYLANLABS-2018M1027182

PATIENT
  Age: 44 Year

DRUGS (6)
  1. PACLITAXEL. [Suspect]
     Active Substance: PACLITAXEL
     Indication: HER-2 POSITIVE BREAST CANCER
     Dosage: 90 MG/M2, UNK
     Route: 065
  2. TRASTUZUMAB. [Suspect]
     Active Substance: TRASTUZUMAB
     Indication: HER-2 POSITIVE BREAST CANCER
     Dosage: LOADING DOSE
     Route: 042
     Dates: start: 20140303
  3. CISPLATIN. [Suspect]
     Active Substance: CISPLATIN
     Indication: RECTAL ADENOCARCINOMA
     Dosage: 20 MG/M2, 1 WEEK
     Route: 065
     Dates: start: 20140401, end: 20140521
  4. CARBOPLATIN. [Suspect]
     Active Substance: CARBOPLATIN
     Indication: HER-2 POSITIVE BREAST CANCER
     Dosage: AREA UNDER THE CURVE 2
     Route: 065
  5. TRASTUZUMAB. [Suspect]
     Active Substance: TRASTUZUMAB
     Dosage: 2 MG/KG, 1 WEEK
     Route: 042
  6. FLUOROURACIL. [Suspect]
     Active Substance: FLUOROURACIL
     Indication: RECTAL ADENOCARCINOMA
     Dosage: UNK
     Route: 042

REACTIONS (5)
  - Lymphocyte count decreased [Unknown]
  - Abdominal pain [Unknown]
  - Haemoglobin decreased [Recovering/Resolving]
  - Iron deficiency anaemia [Recovering/Resolving]
  - Diarrhoea [Unknown]
